FAERS Safety Report 18177072 (Version 1)
Quarter: 2020Q3

REPORT INFORMATION
  Report Type: Spontaneous
  Country: US (occurrence: US)
  Receive Date: 20200820
  Receipt Date: 20200820
  Transmission Date: 20201103
  Serious: No
  Sender: FDA-Public Use
  Company Number: US-AIMMUNE THERAPEUTICS, INC.-2020AIM00222

PATIENT

DRUGS (8)
  1. VITAMINS NOS [Concomitant]
     Active Substance: VITAMINS
     Dosage: UNK, 1X/DAY
  2. HYDROXYZINE [Concomitant]
     Active Substance: HYDROXYZINE HYDROCHLORIDE
     Indication: DERMATITIS ATOPIC
     Dosage: 14 MG, 1X/DAY AT BEDTIME
  3. SINGULAIR [Concomitant]
     Active Substance: MONTELUKAST SODIUM
     Dosage: 4 MG, 1X/DAY AT BEDTIME
     Route: 048
  4. RETIN?A [Concomitant]
     Active Substance: TRETINOIN
     Dosage: 1X/DAY AT BEDTIME
     Route: 061
  5. TRIAMCINOLONE [Concomitant]
     Active Substance: TRIAMCINOLONE
     Dosage: 2X/DAY
     Route: 061
  6. EPIPEN [Concomitant]
     Active Substance: EPINEPHRINE
     Indication: HYPERSENSITIVITY
     Dosage: UNK UNK, AS NEEDED
     Route: 058
  7. XOPENEX [Concomitant]
     Active Substance: LEVALBUTEROL HYDROCHLORIDE
     Dosage: 2 PUFFS EVERY 4?6 HOURS AS NEEDED
     Route: 055
  8. PALFORZIA [Suspect]
     Active Substance: PEANUT
     Indication: FOOD ALLERGY
     Dosage: 3 MG
     Route: 048
     Dates: start: 20200715

REACTIONS (2)
  - Abdominal pain upper [Recovered/Resolved]
  - Fatigue [Recovered/Resolved]

NARRATIVE: CASE EVENT DATE: 20200717
